FAERS Safety Report 5748380-9 (Version None)
Quarter: 2008Q2

REPORT INFORMATION
  Report Type: 
  Country: None (occurrence: None)
  Receive Date: 20080523
  Receipt Date: 20080513
  Transmission Date: 20081010
  Serious: Yes (Other)
  Sender: FDA-Public Use
  Company Number: BR-PFIZER INC-2008031616

PATIENT
  Age: 72 Year
  Sex: Female

DRUGS (3)
  1. FELDENE [Suspect]
     Indication: MUSCULOSKELETAL PAIN
     Route: 048
  2. LORAX [Concomitant]
  3. NEOZINE [Concomitant]

REACTIONS (3)
  - DRUG INEFFECTIVE [None]
  - FEELING ABNORMAL [None]
  - LABYRINTHITIS [None]
